FAERS Safety Report 22161262 (Version 5)
Quarter: 2024Q2

REPORT INFORMATION
  Report Type: Report from Study
  Country: CA (occurrence: CA)
  Receive Date: 20230331
  Receipt Date: 20240508
  Transmission Date: 20240716
  Serious: Yes (Hospitalization, Other)
  Sender: FDA-Public Use
  Company Number: CA-PFIZER INC-202300049270

PATIENT
  Age: 80 Year
  Sex: Female

DRUGS (26)
  1. RITUXIMAB [Suspect]
     Active Substance: RITUXIMAB
     Indication: Scleroderma
     Dosage: 1000 MG
     Route: 042
  2. RITUXIMAB [Suspect]
     Active Substance: RITUXIMAB
     Indication: Interstitial lung disease
     Dosage: 1000 MG
     Route: 042
  3. RITUXIMAB [Suspect]
     Active Substance: RITUXIMAB
     Dosage: 1 G
     Route: 042
  4. RITUXIMAB [Suspect]
     Active Substance: RITUXIMAB
     Dosage: 1000 MG
     Route: 042
  5. RITUXIMAB [Suspect]
     Active Substance: RITUXIMAB
     Dosage: 1000 MG
     Route: 042
  6. RITUXIMAB [Suspect]
     Active Substance: RITUXIMAB
     Dosage: 1000 MG
     Route: 042
  7. RITUXIMAB [Suspect]
     Active Substance: RITUXIMAB
     Dosage: 1000 MG
     Route: 042
  8. RITUXIMAB [Suspect]
     Active Substance: RITUXIMAB
     Indication: Scleroderma
     Dosage: 1000 MG
     Route: 042
  9. RITUXIMAB [Suspect]
     Active Substance: RITUXIMAB
     Indication: Interstitial lung disease
  10. ACETAMINOPHEN [Concomitant]
     Active Substance: ACETAMINOPHEN
     Dosage: UNK
     Route: 048
  11. ACETAMINOPHEN [Concomitant]
     Active Substance: ACETAMINOPHEN
     Dosage: 650 MG
     Route: 048
  12. ASPIRIN [Concomitant]
     Active Substance: ASPIRIN
     Dosage: UNK
     Route: 065
  13. AMLODIPINE [Concomitant]
     Active Substance: AMLODIPINE BESYLATE
     Dosage: UNK
     Route: 065
  14. DIPHENHYDRAMINE HYDROCHLORIDE [Concomitant]
     Active Substance: DIPHENHYDRAMINE HYDROCHLORIDE
     Dosage: UNK
     Route: 065
  15. DIPHENHYDRAMINE HYDROCHLORIDE [Concomitant]
     Active Substance: DIPHENHYDRAMINE HYDROCHLORIDE
     Dosage: UNK
     Route: 048
  16. DIPHENHYDRAMINE HYDROCHLORIDE [Concomitant]
     Active Substance: DIPHENHYDRAMINE HYDROCHLORIDE
     Dosage: 50 MG
     Route: 048
  17. ERGOCALCIFEROL [Concomitant]
     Active Substance: ERGOCALCIFEROL
     Dosage: UNK
     Route: 065
  18. ESOMEPRAZOLE [Concomitant]
     Active Substance: ESOMEPRAZOLE
     Dosage: UNK
     Route: 065
  19. LOSARTAN [Concomitant]
     Active Substance: LOSARTAN
     Dosage: UNK
     Route: 065
  20. METHYLPREDNISOLONE [Concomitant]
     Active Substance: METHYLPREDNISOLONE
     Dosage: UNK
     Route: 042
  21. METHYLPREDNISOLONE [Concomitant]
     Active Substance: METHYLPREDNISOLONE
     Dosage: 100 MG
     Route: 042
  22. MYCOPHENOLATE MOFETIL [Concomitant]
     Active Substance: MYCOPHENOLATE MOFETIL
     Dosage: UNK
     Route: 065
  23. ROSUVASTATIN CALCIUM [Concomitant]
     Active Substance: ROSUVASTATIN CALCIUM
     Dosage: UNK
     Route: 065
  24. DULOXETINE HYDROCHLORIDE [Concomitant]
     Active Substance: DULOXETINE HYDROCHLORIDE
     Dosage: UNK
     Route: 065
  25. VITAMIN D NOS [Concomitant]
     Active Substance: VITAMIN D NOS
     Route: 065
  26. DIPHENHYDRAMINE [Concomitant]
     Active Substance: DIPHENHYDRAMINE
     Dosage: 50 MG
     Route: 048

REACTIONS (9)
  - Fatigue [Recovered/Resolved]
  - Pneumonia [Recovered/Resolved]
  - Blood pressure increased [Recovered/Resolved]
  - Dyspnoea [Recovered/Resolved]
  - Nasopharyngitis [Recovered/Resolved]
  - Pain [Recovered/Resolved]
  - Rhinorrhoea [Recovered/Resolved]
  - COVID-19 [Recovered/Resolved]
  - Off label use [Unknown]
